FAERS Safety Report 10244503 (Version 1)
Quarter: 2014Q2

REPORT INFORMATION
  Report Type: Spontaneous
  Country: DE (occurrence: None)
  Receive Date: 20140616
  Receipt Date: 20140616
  Transmission Date: 20141212
  Serious: Yes (Hospitalization)
  Sender: FDA-Public Use
  Company Number: AUR-APL-2014-06364

PATIENT
  Age: 88 Year
  Sex: Female

DRUGS (3)
  1. LAMOTRIGINE (LAMOTRIGINE) UNKNOWN [Suspect]
     Indication: GENERALISED TONIC-CLONIC SEIZURE
     Route: 048
     Dates: start: 201402, end: 20140512
  2. ASS (ACETYLSALICYLIC ACID) [Concomitant]
  3. METOPROLOL (METOPROLOL) [Concomitant]

REACTIONS (2)
  - Rash maculo-papular [None]
  - Pruritus [None]
